FAERS Safety Report 15307311 (Version 1)
Quarter: 2018Q3

REPORT INFORMATION
  Report Type: Spontaneous
  Country: US (occurrence: US)
  Receive Date: 20180810
  Receipt Date: 20180810
  Transmission Date: 20181010
  Serious: Yes (Hospitalization)
  Sender: FDA-Public Use
  Company Number: None

PATIENT
  Age: 31 Year
  Sex: Female
  Weight: 101.25 kg

DRUGS (1)
  1. ZONEGRAN [Suspect]
     Active Substance: ZONISAMIDE
     Indication: MIGRAINE

REACTIONS (17)
  - Staphylococcal infection [None]
  - Speech disorder [None]
  - Stomatitis [None]
  - Depression [None]
  - Drug eruption [None]
  - Cardiac disorder [None]
  - Gingival bleeding [None]
  - Angioedema [None]
  - Drug reaction with eosinophilia and systemic symptoms [None]
  - Weight increased [None]
  - Stevens-Johnson syndrome [None]
  - Candida infection [None]
  - Vaginal infection [None]
  - Pruritus [None]
  - Skin disorder [None]
  - Anxiety [None]
  - Pyrexia [None]

NARRATIVE: CASE EVENT DATE: 20161125
